FAERS Safety Report 21979764 (Version 1)
Quarter: 2023Q1

REPORT INFORMATION
  Report Type: Spontaneous
  Country: SE (occurrence: SE)
  Receive Date: 20230210
  Receipt Date: 20230210
  Transmission Date: 20230418
  Serious: Yes (Other)
  Sender: FDA-Public Use
  Company Number: None

PATIENT
  Age: 61 Year
  Sex: Female

DRUGS (1)
  1. CYCLOSPORINE [Suspect]
     Active Substance: CYCLOSPORINE
     Indication: Eye infection
     Dosage: ONE DROP PER EYE/DAY

REACTIONS (3)
  - Vitreous detachment [Not Recovered/Not Resolved]
  - Off label use [Unknown]
  - Contraindicated product administered [Unknown]
